FAERS Safety Report 11824282 (Version 1)
Quarter: 2015Q4

REPORT INFORMATION
  Report Type: Spontaneous
  Country: US (occurrence: US)
  Receive Date: 20151210
  Receipt Date: 20151210
  Transmission Date: 20160305
  Serious: Yes (Death, Hospitalization)
  Sender: FDA-Public Use
  Company Number: US-JNJFOC-20151203313

PATIENT
  Age: 71 Year
  Sex: Male

DRUGS (1)
  1. TRAMADOL HYDROCHLORIDE. [Suspect]
     Active Substance: TRAMADOL HYDROCHLORIDE
     Indication: SUICIDE ATTEMPT
     Dosage: 50 MG TABLETS
     Route: 048

REACTIONS (10)
  - Hypotension [Fatal]
  - Seizure [Recovered/Resolved]
  - Toxicity to various agents [Fatal]
  - Unresponsive to stimuli [Fatal]
  - Bundle branch block left [Fatal]
  - Mechanical ventilation [Fatal]
  - Pneumonia aspiration [Fatal]
  - Acidosis [Fatal]
  - Coma [Fatal]
  - Endotracheal intubation [Fatal]
